FAERS Safety Report 15459743 (Version 1)
Quarter: 2018Q3

REPORT INFORMATION
  Report Type: Spontaneous
  Country: US (occurrence: US)
  Receive Date: 20180928
  Receipt Date: 20180928
  Transmission Date: 20181010
  Serious: No
  Sender: FDA-Public Use
  Company Number: None

PATIENT
  Age: 70 Year
  Sex: Female
  Weight: 82.1 kg

DRUGS (1)
  1. ENBREL [Suspect]
     Active Substance: ETANERCEPT
     Indication: PSORIASIS
     Dosage: INJECT 50MG SUBCUTANEOUSLY ONCE  WEEKLY  AS DIRECTED
     Route: 058
     Dates: start: 201808

REACTIONS (4)
  - Urticaria [None]
  - Erythema [None]
  - Skin warm [None]
  - Cystitis [None]
